FAERS Safety Report 18755819 (Version 1)
Quarter: 2021Q1

REPORT INFORMATION
  Report Type: Report from Study
  Country: US (occurrence: US)
  Receive Date: 20210119
  Receipt Date: 20210119
  Transmission Date: 20210419
  Serious: Yes (Other)
  Sender: FDA-Public Use
  Company Number: US-ASTELLAS-2021US001658

PATIENT
  Age: 47 Year
  Sex: Male

DRUGS (2)
  1. ATG [ANTILYMPHOCYTE IMMUNOGLOBULIN (HORSE)] [Concomitant]
     Active Substance: EQUINE THYMOCYTE IMMUNE GLOBULIN
     Indication: APLASTIC ANAEMIA
     Dosage: UNK UNK, UNKNOWN FREQ.
     Route: 065
  2. TACROLIMUS. [Suspect]
     Active Substance: TACROLIMUS
     Indication: APLASTIC ANAEMIA
     Route: 065

REACTIONS (3)
  - Toxicity to various agents [Unknown]
  - Transaminases increased [Unknown]
  - Product use in unapproved indication [Unknown]
